FAERS Safety Report 9818032 (Version 1)
Quarter: 2014Q1

REPORT INFORMATION
  Report Type: Spontaneous
  Country: CA (occurrence: CA)
  Receive Date: 20140115
  Receipt Date: 20140115
  Transmission Date: 20141002
  Serious: Yes (Other)
  Sender: FDA-Public Use
  Company Number: CA-ASTRAZENECA-2014SE01199

PATIENT
  Age: 52 Year
  Sex: Male
  Weight: 23 kg

DRUGS (5)
  1. CRESTOR [Suspect]
     Route: 048
  2. BETASERON [Suspect]
     Route: 058
  3. BACLOFEN [Concomitant]
  4. CITALOPRAM [Concomitant]
  5. TRAZODONE [Concomitant]

REACTIONS (6)
  - Angiopathy [Unknown]
  - Cerebrovascular accident [Unknown]
  - Eye haemorrhage [Unknown]
  - Limb discomfort [Unknown]
  - Vision blurred [Unknown]
  - Pain in extremity [Unknown]
